FAERS Safety Report 18372248 (Version 1)
Quarter: 2020Q4

REPORT INFORMATION
  Report Type: Spontaneous
  Country: US (occurrence: US)
  Receive Date: 20201012
  Receipt Date: 20201012
  Transmission Date: 20210114
  Serious: No
  Sender: FDA-Public Use
  Company Number: US-PFIZER INC-2019281453

PATIENT
  Age: 65 Year
  Sex: Female
  Weight: 104.33 kg

DRUGS (5)
  1. DILANTIN [Suspect]
     Active Substance: PHENYTOIN
     Indication: SEIZURE
     Dosage: 100 MG, UNK
  2. DILANTIN [Suspect]
     Active Substance: PHENYTOIN
     Indication: EPILEPSY
     Dosage: 90 MG, DAILY (TAKE 3 CAPSULES AT BEDTIME)
     Dates: start: 20200601
  3. DILANTIN [Suspect]
     Active Substance: PHENYTOIN
     Dosage: 200 MG, 2X/DAY (TAKE TWO CAPSULES(200 MG DOSE ) BY MOUTH 2(TWO) TIMES DAILY)
     Route: 048
     Dates: start: 20200601
  4. DILANTIN [Suspect]
     Active Substance: PHENYTOIN
     Dosage: 290 MG, DAILY (TWO 100 MG A DAY AND THREE 30 MG A DAY)
  5. DILANTIN [Suspect]
     Active Substance: PHENYTOIN
     Indication: IDIOPATHIC GENERALISED EPILEPSY
     Dosage: 30 MG

REACTIONS (2)
  - Inappropriate schedule of product administration [Unknown]
  - Drug level abnormal [Unknown]
